FAERS Safety Report 5161128-4 (Version None)
Quarter: 2006Q4

REPORT INFORMATION
  Report Type: 
  Country: None (occurrence: None)
  Receive Date: 20061121
  Receipt Date: 20061107
  Transmission Date: 20070319
  Serious: Yes (Other)
  Sender: FDA-Public Use
  Company Number: 2006136716

PATIENT
  Age: 49 Year
  Sex: Male

DRUGS (1)
  1. CLINDAMYCIN HCL [Suspect]
     Indication: INFLAMMATION
     Dosage: 1200 MG (300 MG, 4 IN 1 ), ORAL
     Route: 048
     Dates: start: 20061102

REACTIONS (5)
  - FOREIGN BODY TRAUMA [None]
  - NAUSEA [None]
  - ODYNOPHAGIA [None]
  - OESOPHAGEAL OEDEMA [None]
  - VOMITING [None]
